FAERS Safety Report 9867567 (Version 1)
Quarter: 2014Q1

REPORT INFORMATION
  Report Type: Spontaneous
  Country: US (occurrence: US)
  Receive Date: 20140204
  Receipt Date: 20140204
  Transmission Date: 20141002
  Serious: No
  Sender: FDA-Public Use
  Company Number: US-BAYER-2014-017541

PATIENT
  Age: 84 Year
  Sex: Female

DRUGS (1)
  1. ALEVE CAPLET [Suspect]
     Route: 048

REACTIONS (3)
  - Feeling abnormal [None]
  - Headache [Recovered/Resolved]
  - Drug ineffective [None]
